FAERS Safety Report 8087395-5 (Version None)
Quarter: 2012Q1

REPORT INFORMATION
  Report Type: 
  Country: None (occurrence: None)
  Receive Date: 20120128
  Receipt Date: 20110516
  Transmission Date: 20120608
  Serious: No
  Sender: FDA-Public Use
  Company Number: US-ABBOTT-11P-163-0726141-00

PATIENT
  Sex: Female
  Weight: 77.18 kg

DRUGS (9)
  1. DIOVAN [Concomitant]
     Indication: HYPERTENSION
  2. CALCIUM [Concomitant]
     Indication: MIXED CONNECTIVE TISSUE DISEASE
  3. ACTONEL [Concomitant]
     Indication: MIXED CONNECTIVE TISSUE DISEASE
  4. ASCORBIC ACID [Concomitant]
     Indication: MIXED CONNECTIVE TISSUE DISEASE
  5. METHOTREXATE [Concomitant]
     Indication: MIXED CONNECTIVE TISSUE DISEASE
  6. HUMIRA [Suspect]
     Indication: MIXED CONNECTIVE TISSUE DISEASE
     Dates: start: 20060101
  7. PLAQUENIL [Concomitant]
     Indication: MIXED CONNECTIVE TISSUE DISEASE
  8. VITAMIN B-12 [Concomitant]
     Indication: MIXED CONNECTIVE TISSUE DISEASE
  9. VITAMIN D [Concomitant]
     Indication: MIXED CONNECTIVE TISSUE DISEASE

REACTIONS (5)
  - INJECTION SITE HAEMORRHAGE [None]
  - INJECTION SITE SWELLING [None]
  - MEDICATION ERROR [None]
  - INJECTION SITE PAIN [None]
  - EXPIRED DRUG ADMINISTERED [None]
